FAERS Safety Report 17506202 (Version 1)
Quarter: 2020Q1

REPORT INFORMATION
  Report Type: Spontaneous
  Country: US (occurrence: US)
  Receive Date: 20200305
  Receipt Date: 20200305
  Transmission Date: 20200409
  Serious: Yes (Other)
  Sender: FDA-Public Use
  Company Number: US-FRESENIUS KABI-FK202002251

PATIENT

DRUGS (2)
  1. CHONDROITIN SULFATE/HYALURONATE SODIUM [Suspect]
     Active Substance: CHONDROITIN SULFATE A\HYALURONATE SODIUM
     Indication: PRODUCT USED FOR UNKNOWN INDICATION
     Route: 031
     Dates: start: 20200303
  2. XYLOCAINE-MPF [Suspect]
     Active Substance: LIDOCAINE HYDROCHLORIDE
     Indication: PAIN MANAGEMENT
     Route: 031
     Dates: start: 20200303, end: 20200303

REACTIONS (5)
  - Product use issue [Recovering/Resolving]
  - Eye disorder [Recovering/Resolving]
  - Keratitis [Recovering/Resolving]
  - Eye injury [Recovering/Resolving]
  - Iris disorder [Recovering/Resolving]

NARRATIVE: CASE EVENT DATE: 20200303
